FAERS Safety Report 9302601 (Version 2)
Quarter: 2014Q2

REPORT INFORMATION
  Report Type: Spontaneous
  Country: US (occurrence: US)
  Receive Date: 20130522
  Receipt Date: 20140404
  Transmission Date: 20141212
  Serious: Yes (Other)
  Sender: FDA-Public Use
  Company Number: US-SANOFI-AVENTIS-2013SA051090

PATIENT
  Age: 68 Year
  Sex: Female
  Weight: 206 kg

DRUGS (4)
  1. LANTUS SOLOSTAR [Suspect]
     Indication: TYPE 2 DIABETES MELLITUS
     Dosage: 55 IN THE AM AND 55 AT PM
     Route: 058
     Dates: start: 20140227
  2. LANTUS SOLOSTAR [Suspect]
     Indication: TYPE 2 DIABETES MELLITUS
     Dosage: 55 IN THE AM AND 55 AT PM DOSE:75 UNIT(S)
     Route: 058
  3. SOLOSTAR [Concomitant]
     Indication: TYPE 2 DIABETES MELLITUS
     Dosage: START DATE: OVER A YEAR.
  4. PRAVASTATIN [Concomitant]
     Indication: BLOOD CHOLESTEROL

REACTIONS (7)
  - Cataract [Unknown]
  - Glaucoma [Unknown]
  - Visual impairment [Unknown]
  - Fatigue [Unknown]
  - Blood glucose increased [Not Recovered/Not Resolved]
  - Therapeutic response decreased [Unknown]
  - Drug administration error [Unknown]
